FAERS Safety Report 17450188 (Version 1)
Quarter: 2020Q1

REPORT INFORMATION
  Report Type: Spontaneous
  Country: US (occurrence: US)
  Receive Date: 20200221
  Receipt Date: 20200221
  Transmission Date: 20200409
  Serious: No
  Sender: FDA-Public Use
  Company Number: None

PATIENT
  Age: 35 Year
  Sex: Male
  Weight: 54 kg

DRUGS (2)
  1. ALFUZOSIN [Suspect]
     Active Substance: ALFUZOSIN
     Indication: PELVIC FLOOR DYSSYNERGIA
     Dosage: ?          QUANTITY:1 TABLET(S);?
     Route: 048
  2. MULTIVITAMIN GUMMY [Concomitant]

REACTIONS (4)
  - Muscle spasms [None]
  - Pelvic floor dyssynergia [None]
  - Heart rate increased [None]
  - Seizure [None]

NARRATIVE: CASE EVENT DATE: 20180201
